FAERS Safety Report 24530378 (Version 1)
Quarter: 2024Q4

REPORT INFORMATION
  Report Type: Spontaneous
  Country: RU (occurrence: RU)
  Receive Date: 20241021
  Receipt Date: 20241021
  Transmission Date: 20250115
  Serious: Yes (Hospitalization, Other)
  Sender: SANOFI AVENTIS
  Company Number: RU-SA-2024SA296179

PATIENT
  Age: 33 Year

DRUGS (1)
  1. ALEMTUZUMAB [Suspect]
     Active Substance: ALEMTUZUMAB
     Indication: Multiple sclerosis
     Dosage: 5 INFUSION
     Dates: start: 202311

REACTIONS (19)
  - Neuromyelitis optica spectrum disorder [Unknown]
  - Neck pain [Unknown]
  - Headache [Unknown]
  - Asthenia [Unknown]
  - Musculoskeletal stiffness [Unknown]
  - Nausea [Unknown]
  - Vomiting [Unknown]
  - Visual acuity reduced [Unknown]
  - Visual impairment [Unknown]
  - Hypoaesthesia [Unknown]
  - Muscle tightness [Unknown]
  - Electric shock sensation [Unknown]
  - Dysuria [Unknown]
  - Strabismus [Unknown]
  - Binocular eye movement disorder [Unknown]
  - Facial paresis [Unknown]
  - Hemihypoaesthesia [Unknown]
  - Dysmetria [Unknown]
  - Psychiatric symptom [Unknown]

NARRATIVE: CASE EVENT DATE: 20240101
